FAERS Safety Report 8836528 (Version 1)
Quarter: 2012Q4

REPORT INFORMATION
  Report Type: Spontaneous
  Country: US (occurrence: None)
  Receive Date: 20121009
  Receipt Date: 20121009
  Transmission Date: 20130627
  Serious: Yes (Disabling)
  Sender: FDA-Public Use
  Company Number: 12US005454

PATIENT
  Age: 8 Year
  Sex: Male

DRUGS (1)
  1. VALPROIC ACID [Suspect]
     Indication: RETINITIS PIGMENTOSA
     Route: 048

REACTIONS (3)
  - Visual acuity reduced [None]
  - Off label use [None]
  - Toxicity to various agents [None]
